FAERS Safety Report 7428020-3 (Version None)
Quarter: 2011Q2

REPORT INFORMATION
  Report Type: 
  Country: None (occurrence: None)
  Receive Date: 20110421
  Receipt Date: 20110415
  Transmission Date: 20111010
  Serious: Yes (Hospitalization)
  Sender: FDA-Public Use
  Company Number: FR-KINGPHARMUSA00001-K201100465

PATIENT
  Age: 72 Year
  Sex: Female

DRUGS (7)
  1. CARDENSIEL [Concomitant]
  2. TELMISARTAN [Suspect]
     Indication: HYPERTENSION
     Dosage: 80 MG, QD
     Route: 048
     Dates: start: 20100601, end: 20100901
  3. APROVEL [Suspect]
     Indication: HYPERTENSION
     Dosage: 75 MG, QD
     Route: 048
     Dates: start: 20101101, end: 20110112
  4. KARDEGIC [Concomitant]
  5. LASIX [Concomitant]
  6. ALTACE [Suspect]
     Indication: HYPERTENSION
     Dosage: 10 MG, QD
     Route: 048
     Dates: start: 20100401, end: 20100601
  7. CRESTOR [Concomitant]

REACTIONS (5)
  - WEIGHT DECREASED [None]
  - DECREASED APPETITE [None]
  - LIGHT CHAIN ANALYSIS INCREASED [None]
  - DYSGEUSIA [None]
  - GENERAL PHYSICAL HEALTH DETERIORATION [None]
